FAERS Safety Report 8116163-0 (Version None)
Quarter: 2012Q1

REPORT INFORMATION
  Report Type: 
  Country: None (occurrence: None)
  Receive Date: 20120206
  Receipt Date: 20120201
  Transmission Date: 20120608
  Serious: Yes (Hospitalization, Other)
  Sender: FDA-Public Use
  Company Number: US-PFIZER INC-2011128654

PATIENT
  Sex: Male
  Weight: 90.7 kg

DRUGS (3)
  1. SUTENT [Suspect]
     Indication: RENAL CELL CARCINOMA
     Dosage: 50 MG, 1X/DAY, 4 WEEKS ON/2 WEEKS OFF
     Route: 048
     Dates: start: 20110521, end: 20110613
  2. SUTENT [Suspect]
     Dosage: 37.5 MG, (12.5MG CAP + 25MG CAP) X 28DAYS Q 42 DAYS
  3. SUTENT [Suspect]
     Indication: METASTASES TO LUNG
     Dosage: 50 MG, 1X/DAY, 4 WEEKS ON/2 WEEKS OFF
     Dates: start: 20110705

REACTIONS (13)
  - NAUSEA [None]
  - BOWEL MOVEMENT IRREGULARITY [None]
  - CHROMATURIA [None]
  - MALAISE [None]
  - DIARRHOEA [None]
  - BLOOD PRESSURE INCREASED [None]
  - DYSGEUSIA [None]
  - GASTROOESOPHAGEAL REFLUX DISEASE [None]
  - HAEMORRHOIDAL HAEMORRHAGE [None]
  - CHAPPED LIPS [None]
  - DECREASED APPETITE [None]
  - CONSTIPATION [None]
  - GOUT [None]
